FAERS Safety Report 10448781 (Version 2)
Quarter: 2014Q4

REPORT INFORMATION
  Report Type: Spontaneous
  Country: JP (occurrence: JP)
  Receive Date: 20140912
  Receipt Date: 20141008
  Transmission Date: 20150528
  Serious: Yes (Life-Threatening)
  Sender: FDA-Public Use
  Company Number: JP-PFIZER INC-2014249306

PATIENT
  Age: 49 Year
  Sex: Female

DRUGS (1)
  1. ETHINYLESTRADIOL/LEVONORGESTREL [Suspect]
     Active Substance: ETHINYL ESTRADIOL\LEVONORGESTREL
     Indication: MENORRHAGIA
     Dosage: 1 DF, DAILY
     Route: 048
     Dates: start: 2005, end: 20140610

REACTIONS (12)
  - Epilepsy [None]
  - Neck pain [None]
  - Altered state of consciousness [None]
  - Cerebral infarction [None]
  - Chills [None]
  - Anaemia [None]
  - Cerebral venous thrombosis [Recovered/Resolved]
  - Headache [None]
  - Malaise [None]
  - Condition aggravated [None]
  - Haemoglobin decreased [None]
  - Vomiting [None]

NARRATIVE: CASE EVENT DATE: 201405
